FAERS Safety Report 23015435 (Version 1)
Quarter: 2023Q4

REPORT INFORMATION
  Report Type: Report from Study
  Country: AU (occurrence: AU)
  Receive Date: 20231002
  Receipt Date: 20231002
  Transmission Date: 20240109
  Serious: Yes (Other)
  Sender: FDA-Public Use
  Company Number: AU-JNJFOC-20230952719

PATIENT
  Sex: Male

DRUGS (1)
  1. BORTEZOMIB [Suspect]
     Active Substance: BORTEZOMIB
     Indication: Richter^s syndrome
     Dosage: UNK
     Route: 058

REACTIONS (2)
  - Richter^s syndrome [Unknown]
  - Off label use [Unknown]
